FAERS Safety Report 21904312 (Version 1)
Quarter: 2023Q1

REPORT INFORMATION
  Report Type: Spontaneous
  Country: US (occurrence: US)
  Receive Date: 20230124
  Receipt Date: 20230124
  Transmission Date: 20230418
  Serious: Yes (Hospitalization)
  Sender: FDA-Public Use
  Company Number: US-ROCHE-3051114

PATIENT
  Age: 47 Year
  Sex: Female

DRUGS (19)
  1. CLONAZEPAM [Suspect]
     Active Substance: CLONAZEPAM
     Indication: Product used for unknown indication
     Dosage: DAILY DOSE: 1 MILLIGRAM
     Route: 048
  2. CLONAZEPAM [Suspect]
     Active Substance: CLONAZEPAM
     Indication: Immune system disorder
     Dosage: DAILY DOSE: 1 MILLIGRAM
     Route: 048
  3. CLONAZEPAM [Suspect]
     Active Substance: CLONAZEPAM
     Indication: Product used for unknown indication
  4. CLONAZEPAM [Suspect]
     Active Substance: CLONAZEPAM
     Indication: Immune system disorder
  5. RITUXAN [Suspect]
     Active Substance: RITUXIMAB
     Indication: Immune system disorder
     Dosage: DAY 0 AND DAY 14 THEN EVERY 6 MONTHS
     Route: 042
     Dates: start: 20200714
  6. ACTEMRA [Suspect]
     Active Substance: TOCILIZUMAB
     Indication: Product used for unknown indication
     Route: 042
  7. LIPITOR [Concomitant]
     Active Substance: ATORVASTATIN CALCIUM
     Dosage: TAKE 1 TAB (20 MG) BY MOUTH DAILY?DAILY DOSE: 20 MILLIGRAM
     Route: 048
  8. ZYRTEC [Concomitant]
     Active Substance: CETIRIZINE HYDROCHLORIDE
     Dosage: TAKE 1 TAB (10 MG ) BY ORAL ROUTE EVERY DAY?DAILY DOSE: 10 MILLIGRAM
     Route: 048
  9. CLEOCIN [Concomitant]
     Active Substance: CLINDAMYCIN PHOSPHATE
     Dosage: TAKE 1 CAPSULE (300 MG TOTAL) BY MOUTH THREE TIMES DAILY FOR 10 DAYS?DAILY DOSE: 90 MILLIGRAM
     Route: 048
  10. FLEXERIL [Concomitant]
     Active Substance: CYCLOBENZAPRINE HYDROCHLORIDE
     Indication: Neck pain
     Dosage: TAKE 1 TABLET BY MOUTH THREE TIMES DIALY AS NEEDED NECK PAIN?DAILY DOSE: 30 MILLIGRAM
     Route: 048
  11. CYMBALTA [Concomitant]
     Active Substance: DULOXETINE HYDROCHLORIDE
     Dosage: TAKE 90 MG BY MOUTH DAILY?DAILY DOSE: 30 MILLIGRAM
     Route: 048
  12. NORCO [Concomitant]
     Active Substance: ACETAMINOPHEN\HYDROCODONE BITARTRATE
     Indication: Pain
     Dosage: TAKE 1 TABLET BY MOUTH EVERY 6 HOURS AS NEEDED FOR MODERATE PAIN
     Route: 048
  13. LAMICTAL [Concomitant]
     Active Substance: LAMOTRIGINE
     Dosage: DAILY DOSE: 50 MILLIGRAM
     Route: 048
  14. SYNTHROID [Concomitant]
     Active Substance: LEVOTHYROXINE SODIUM
     Dosage: 50 MCG TAKE 1 TABLET BY MOUTH EVERY MORNING BEFORE BREAKFAST?DAILY DOSE: 50 MICROGRAM
     Route: 048
  15. MOBIC [Concomitant]
     Active Substance: MELOXICAM
     Dosage: TAKE 1/2 TO 1 TABLET BY MOUTH EVERY DAY?DAILY DOSE: 15 MILLIGRAM
     Route: 048
  16. BACTROBAN [Concomitant]
     Active Substance: MUPIROCIN\MUPIROCIN CALCIUM
     Dosage: APPLY TOPICALLY 2 TIMES DAILY AS NEEDED
  17. PROTONIX [Concomitant]
     Active Substance: PANTOPRAZOLE SODIUM
  18. DELTASONE [Concomitant]
     Active Substance: PREDNISONE
  19. DESYREL [Concomitant]
     Active Substance: TRAZODONE HYDROCHLORIDE

REACTIONS (6)
  - Pneumonia [Not Recovered/Not Resolved]
  - Influenza [Not Recovered/Not Resolved]
  - Vasculitis [Not Recovered/Not Resolved]
  - Dyspnoea [Unknown]
  - Influenza [Unknown]
  - Respiratory alkalosis [Unknown]
